FAERS Safety Report 17469500 (Version 1)
Quarter: 2020Q1

REPORT INFORMATION
  Report Type: Report from Study
  Country: US (occurrence: US)
  Receive Date: 20200227
  Receipt Date: 20200227
  Transmission Date: 20200409
  Serious: Yes (Other)
  Sender: FDA-Public Use
  Company Number: US-SHIRE-US202006875

PATIENT
  Sex: Female

DRUGS (1)
  1. HUMAN IMMUNOGLOBULIN; HYALURONIDASE [Suspect]
     Active Substance: HUMAN IMMUNOGLOBULIN G\HYALURONIDASE RECOMBINANT HUMAN
     Indication: PRIMARY IMMUNODEFICIENCY SYNDROME
     Dosage: 50 GRAM, EVERY 3 WK
     Route: 065

REACTIONS (6)
  - Pneumonia lipoid [Unknown]
  - Pulmonary oedema [Unknown]
  - Sinusitis [Unknown]
  - Pyrexia [Unknown]
  - Meningitis aseptic [Unknown]
  - Bronchitis [Unknown]
